FAERS Safety Report 5305448-9 (Version None)
Quarter: 2007Q2

REPORT INFORMATION
  Report Type: 
  Country: None (occurrence: None)
  Receive Date: 20070416
  Receipt Date: 20070402
  Transmission Date: 20071010
  Serious: Yes (Other)
  Sender: FDA-Public Use
  Company Number: 2007RR-06655

PATIENT
  Sex: Male

DRUGS (6)
  1. CIPROFLOXACIN [Suspect]
     Indication: SINUSITIS
     Dosage: 500 MG, BID
  2. METHOTREXATE [Suspect]
     Indication: BONE SARCOMA
     Dosage: 12 G/M^2
  3. LEUCOVORIN CALCIUM [Concomitant]
  4. SODIUM BICARBONATE [Concomitant]
  5. PREDNISOLONE [Concomitant]
  6. FENOXAZOLIN [Concomitant]

REACTIONS (6)
  - BONE SARCOMA [None]
  - DISEASE PROGRESSION [None]
  - DRUG INTERACTION [None]
  - HAEMATOTOXICITY [None]
  - HEPATIC ENZYME INCREASED [None]
  - RENAL FAILURE [None]
